FAERS Safety Report 8047390-9 (Version None)
Quarter: 2012Q1

REPORT INFORMATION
  Report Type: 
  Country: None (occurrence: None)
  Receive Date: 20120116
  Receipt Date: 20120112
  Transmission Date: 20120608
  Serious: Yes (Death, Hospitalization)
  Sender: FDA-Public Use
  Company Number: AR-ABBOTT-11P-007-0850748-00

PATIENT
  Sex: Male

DRUGS (8)
  1. ALPRAZOLAM [Concomitant]
     Route: 048
     Dates: start: 20090319
  2. RITONAVIR SOFT GELATIN CAPSULES [Suspect]
     Indication: PRODUCT USED FOR UNKNOWN INDICATION
     Dosage: DAILY
     Dates: start: 20090301
  3. ALPRAZOLAM [Concomitant]
     Indication: ADVERSE EVENT
     Route: 048
     Dates: start: 20090316, end: 20090318
  4. COMBIVIR [Concomitant]
     Indication: PRODUCT USED FOR UNKNOWN INDICATION
     Route: 048
     Dates: start: 20090507
  5. DARUNAVIR [Concomitant]
     Indication: HIV INFECTION
     Route: 048
     Dates: start: 20090507
  6. DARUNAVIR [Suspect]
     Indication: PRODUCT USED FOR UNKNOWN INDICATION
     Dosage: DAILY
     Dates: start: 20090301
  7. RITONAVIR [Concomitant]
     Indication: PRODUCT USED FOR UNKNOWN INDICATION
     Route: 048
     Dates: start: 20090507
  8. TENOFOVIR/VIREAD/TDF [Concomitant]
     Indication: PRODUCT USED FOR UNKNOWN INDICATION
     Route: 048
     Dates: start: 20080924

REACTIONS (10)
  - ANAL CANCER [None]
  - INSOMNIA [None]
  - ABDOMINAL ADHESIONS [None]
  - SEPSIS [None]
  - SKIN PAPILLOMA [None]
  - MULTI-ORGAN FAILURE [None]
  - SCAR [None]
  - GINGIVITIS [None]
  - PERIODONTAL DISEASE [None]
  - ANXIETY DISORDER [None]
